FAERS Safety Report 7720836-9 (Version None)
Quarter: 2011Q3

REPORT INFORMATION
  Report Type: 
  Country: None (occurrence: None)
  Receive Date: 20110830
  Receipt Date: 20110830
  Transmission Date: 20111222
  Serious: Yes (Other)
  Sender: FDA-Public Use
  Company Number: None

PATIENT
  Sex: Male
  Weight: 120.2032 kg

DRUGS (7)
  1. NAPROXEN [Concomitant]
  2. LOSARTAN [Concomitant]
  3. AMLODIPINE BESYLATE [Concomitant]
  4. FISH OIL [Concomitant]
  5. ROSUVASTATIN CALCIUM [Suspect]
     Indication: BLOOD CHOLESTEROL INCREASED
     Dosage: 10MG 1X DAILY PM ORAL
     Route: 048
     Dates: start: 20110101, end: 20110728
  6. ASPIRIN [Concomitant]
  7. VITAMIN B COMPLEX CAP [Concomitant]

REACTIONS (5)
  - JOINT SWELLING [None]
  - MUSCLE SPASMS [None]
  - PAIN IN EXTREMITY [None]
  - TENDERNESS [None]
  - NEPHROLITHIASIS [None]
